FAERS Safety Report 6668131-3 (Version None)
Quarter: 2010Q2

REPORT INFORMATION
  Report Type: 
  Country: None (occurrence: None)
  Receive Date: 20100406
  Receipt Date: 20100326
  Transmission Date: 20101027
  Serious: Yes (Hospitalization)
  Sender: FDA-Public Use
  Company Number: US-BIOGENIDEC-2010BI010372

PATIENT
  Age: 45 Year
  Sex: Female

DRUGS (1)
  1. TYSABRI [Suspect]
     Indication: MULTIPLE SCLEROSIS
     Route: 042
     Dates: start: 20061025

REACTIONS (6)
  - ARTHRALGIA [None]
  - FEELING HOT [None]
  - FIBROMYALGIA [None]
  - INJURY [None]
  - MEMORY IMPAIRMENT [None]
  - SENSORY DISTURBANCE [None]
